FAERS Safety Report 5298493-3 (Version None)
Quarter: 2007Q2

REPORT INFORMATION
  Report Type: 
  Country: None (occurrence: None)
  Receive Date: 20070409
  Receipt Date: 20070327
  Transmission Date: 20071010
  Serious: Yes (Other)
  Sender: FDA-Public Use
  Company Number: IMP_2804_2007

PATIENT
  Age: 45 Year
  Sex: Female

DRUGS (4)
  1. BUPROPION HCL [Suspect]
     Indication: DEPRESSION
     Dosage: 150 MG QDAY PO
     Route: 048
  2. WELLBUTRIN [Suspect]
     Indication: DEPRESSION
     Dosage: 150 MG QDAY PO
     Route: 048
  3. LEXAPRO [Concomitant]
  4. SUMATRIPTAN SUCCINATE [Concomitant]

REACTIONS (4)
  - AGGRESSION [None]
  - ANGER [None]
  - DRUG LEVEL CHANGED [None]
  - HEART RATE INCREASED [None]
